FAERS Safety Report 10087609 (Version 1)
Quarter: 2014Q2

REPORT INFORMATION
  Report Type: Spontaneous
  Country: US (occurrence: US)
  Receive Date: 20140418
  Receipt Date: 20140418
  Transmission Date: 20141212
  Serious: No
  Sender: FDA-Public Use
  Company Number: US-PURDUE-USA-2013-0109249

PATIENT
  Age: 54 Year
  Sex: Male

DRUGS (2)
  1. OXYCONTIN (NDA 22-272) [Suspect]
     Indication: PAIN
     Dosage: 15 MG, BID
     Route: 048
     Dates: start: 2012
  2. OXYCONTIN (NDA 22-272) [Suspect]
     Dosage: 10 MG, BID
     Route: 048
     Dates: start: 2011, end: 2012

REACTIONS (2)
  - Breakthrough pain [Recovered/Resolved]
  - Drug ineffective [Recovered/Resolved]
